FAERS Safety Report 11792829 (Version 1)
Quarter: 2015Q4

REPORT INFORMATION
  Report Type: Spontaneous
  Country: ES (occurrence: None)
  Receive Date: 20151130
  Receipt Date: 20151130
  Transmission Date: 20160305
  Serious: Yes (Other)
  Sender: FDA-Public Use
  Company Number: 2015RR-106548

PATIENT
  Age: 70 Year
  Sex: Male

DRUGS (2)
  1. DORIPENEM [Suspect]
     Active Substance: DORIPENEM
     Indication: ALLERGY TEST
     Route: 042
  2. CLINDAMYCIN [Suspect]
     Active Substance: CLINDAMYCIN\CLINDAMYCIN PHOSPHATE
     Indication: PRODUCT USED FOR UNKNOWN INDICATION

REACTIONS (2)
  - Toxic skin eruption [None]
  - Drug hypersensitivity [None]
